FAERS Safety Report 9287725 (Version 2)
Quarter: 2013Q2

REPORT INFORMATION
  Report Type: Spontaneous
  Country: US (occurrence: US)
  Receive Date: 20130514
  Receipt Date: 20130612
  Transmission Date: 20140414
  Serious: Yes (Hospitalization)
  Sender: FDA-Public Use
  Company Number: US-009507513-1305USA005216

PATIENT
  Sex: Male

DRUGS (5)
  1. SAPHRIS [Suspect]
     Indication: PERSONALITY DISORDER
     Dosage: 10 MG, BID
     Route: 060
     Dates: start: 20130416
  2. SAPHRIS [Suspect]
     Indication: AFFECTIVE DISORDER
  3. PRINIVIL [Concomitant]
     Route: 048
  4. AMBIEN [Concomitant]
  5. EFFEXOR [Concomitant]
     Dosage: 75 MG, BID

REACTIONS (4)
  - Drooling [Unknown]
  - Dyspnoea [Unknown]
  - Headache [Unknown]
  - Dystonia [Unknown]
